FAERS Safety Report 5920909-7 (Version None)
Quarter: 2008Q4

REPORT INFORMATION
  Report Type: 
  Country: None (occurrence: None)
  Receive Date: 20081015
  Receipt Date: 20081015
  Transmission Date: 20090506
  Serious: No
  Sender: FDA-Public Use
  Company Number: None

PATIENT
  Sex: Male
  Weight: 70.3075 kg

DRUGS (1)
  1. LEVITRA [Suspect]
     Indication: ERECTILE DYSFUNCTION
     Dosage: LEVITRA 20MG 2-3 TIMES/WEEK PO
     Route: 048
     Dates: start: 20040601, end: 20081001

REACTIONS (1)
  - SUDDEN HEARING LOSS [None]
